FAERS Safety Report 8067096-X (Version None)
Quarter: 2012Q1

REPORT INFORMATION
  Report Type: 
  Country: None (occurrence: None)
  Receive Date: 20120124
  Receipt Date: 20120117
  Transmission Date: 20120608
  Serious: No
  Sender: FDA-Public Use
  Company Number: US-B.I. PHARMACEUTICALS,INC./RIDGEFIELD-2011-BP-20123BP

PATIENT
  Sex: Male

DRUGS (16)
  1. ISOSORBIDE DINITRATE [Concomitant]
  2. ZANTAC [Concomitant]
     Indication: DYSPEPSIA
  3. PPI [Concomitant]
     Indication: DYSPEPSIA
  4. PRADAXA [Suspect]
     Dosage: 300 MG
     Route: 048
     Dates: start: 20120110
  5. ATENOLOL [Concomitant]
  6. FERROUS SULFATE TAB [Concomitant]
     Dosage: 5 G
  7. L-CARNITINE [Concomitant]
     Dosage: 400 MG
  8. ALLOPURINOL [Concomitant]
  9. ANTIOXIDANTS [Concomitant]
     Dosage: 5 G
  10. ASPIRIN [Concomitant]
  11. ALPHA LIPOIC ACID [Concomitant]
     Dosage: 200 MG
  12. PRADAXA [Suspect]
     Indication: ATRIAL FIBRILLATION
     Dosage: 300 MG
     Route: 048
     Dates: start: 20110802
  13. CYMBALTA [Concomitant]
  14. PROTONIX [Concomitant]
  15. COZAAR [Concomitant]
  16. CO Q-10 [Concomitant]
     Dosage: 100 MG

REACTIONS (4)
  - RECTAL HAEMORRHAGE [None]
  - ANORECTAL DISCOMFORT [None]
  - HEADACHE [None]
  - EPISTAXIS [None]
